FAERS Safety Report 19651512 (Version 8)
Quarter: 2025Q1

REPORT INFORMATION
  Report Type: Spontaneous
  Country: CA (occurrence: CA)
  Receive Date: 20210803
  Receipt Date: 20250327
  Transmission Date: 20250409
  Serious: Yes (Other)
  Sender: MYLAN
  Company Number: CA-MYLANLABS-2021M1047545

PATIENT
  Age: 50 Year
  Sex: Female

DRUGS (172)
  1. AMLODIPINE [Suspect]
     Active Substance: AMLODIPINE BESYLATE
     Indication: Migraine
  2. AMLODIPINE [Suspect]
     Active Substance: AMLODIPINE BESYLATE
     Route: 048
  3. AMLODIPINE [Suspect]
     Active Substance: AMLODIPINE BESYLATE
     Route: 048
  4. AMLODIPINE [Suspect]
     Active Substance: AMLODIPINE BESYLATE
  5. ZOPICLONE [Suspect]
     Active Substance: ZOPICLONE
     Indication: Migraine
  6. ZOPICLONE [Suspect]
     Active Substance: ZOPICLONE
     Route: 065
  7. ZOPICLONE [Suspect]
     Active Substance: ZOPICLONE
     Route: 065
  8. ZOPICLONE [Suspect]
     Active Substance: ZOPICLONE
  9. ATENOLOL [Suspect]
     Active Substance: ATENOLOL
     Indication: Product used for unknown indication
  10. ATENOLOL [Suspect]
     Active Substance: ATENOLOL
     Route: 048
  11. ATENOLOL [Suspect]
     Active Substance: ATENOLOL
     Route: 048
  12. ATENOLOL [Suspect]
     Active Substance: ATENOLOL
  13. CANDESARTAN [Suspect]
     Active Substance: CANDESARTAN
     Indication: Migraine
  14. CANDESARTAN [Suspect]
     Active Substance: CANDESARTAN
  15. CANDESARTAN [Suspect]
     Active Substance: CANDESARTAN
     Route: 048
  16. CANDESARTAN [Suspect]
     Active Substance: CANDESARTAN
     Route: 048
  17. CANDESARTAN [Suspect]
     Active Substance: CANDESARTAN
     Dosage: 16 MILLIGRAM, QD
  18. CANDESARTAN [Suspect]
     Active Substance: CANDESARTAN
     Dosage: 16 MILLIGRAM, QD
  19. CANDESARTAN [Suspect]
     Active Substance: CANDESARTAN
     Dosage: 16 MILLIGRAM, QD
     Route: 048
  20. CANDESARTAN [Suspect]
     Active Substance: CANDESARTAN
     Dosage: 16 MILLIGRAM, QD
     Route: 048
  21. GABAPENTIN [Suspect]
     Active Substance: GABAPENTIN
     Indication: Product used for unknown indication
  22. GABAPENTIN [Suspect]
     Active Substance: GABAPENTIN
     Route: 065
  23. GABAPENTIN [Suspect]
     Active Substance: GABAPENTIN
     Route: 065
  24. GABAPENTIN [Suspect]
     Active Substance: GABAPENTIN
  25. LAMOTRIGINE [Suspect]
     Active Substance: LAMOTRIGINE
     Indication: Product used for unknown indication
  26. LAMOTRIGINE [Suspect]
     Active Substance: LAMOTRIGINE
  27. LAMOTRIGINE [Suspect]
     Active Substance: LAMOTRIGINE
     Route: 065
  28. LAMOTRIGINE [Suspect]
     Active Substance: LAMOTRIGINE
     Route: 065
  29. LAMOTRIGINE [Suspect]
     Active Substance: LAMOTRIGINE
  30. LAMOTRIGINE [Suspect]
     Active Substance: LAMOTRIGINE
  31. LAMOTRIGINE [Suspect]
     Active Substance: LAMOTRIGINE
     Route: 065
  32. LAMOTRIGINE [Suspect]
     Active Substance: LAMOTRIGINE
     Route: 065
  33. RIZATRIPTAN [Suspect]
     Active Substance: RIZATRIPTAN
     Indication: Product used for unknown indication
  34. RIZATRIPTAN [Suspect]
     Active Substance: RIZATRIPTAN
  35. RIZATRIPTAN [Suspect]
     Active Substance: RIZATRIPTAN
     Route: 065
  36. RIZATRIPTAN [Suspect]
     Active Substance: RIZATRIPTAN
     Route: 065
  37. RIZATRIPTAN [Suspect]
     Active Substance: RIZATRIPTAN
  38. RIZATRIPTAN [Suspect]
     Active Substance: RIZATRIPTAN
  39. RIZATRIPTAN [Suspect]
     Active Substance: RIZATRIPTAN
     Route: 065
  40. RIZATRIPTAN [Suspect]
     Active Substance: RIZATRIPTAN
     Route: 065
  41. METOCLOPRAMIDE [Suspect]
     Active Substance: METOCLOPRAMIDE
     Indication: Product used for unknown indication
  42. METOCLOPRAMIDE [Suspect]
     Active Substance: METOCLOPRAMIDE
     Route: 065
  43. METOCLOPRAMIDE [Suspect]
     Active Substance: METOCLOPRAMIDE
     Route: 065
  44. METOCLOPRAMIDE [Suspect]
     Active Substance: METOCLOPRAMIDE
  45. NAPROXEN [Suspect]
     Active Substance: NAPROXEN
     Indication: Product used for unknown indication
  46. NAPROXEN [Suspect]
     Active Substance: NAPROXEN
     Route: 065
  47. NAPROXEN [Suspect]
     Active Substance: NAPROXEN
     Route: 065
  48. NAPROXEN [Suspect]
     Active Substance: NAPROXEN
  49. NIFEDIPINE [Suspect]
     Active Substance: NIFEDIPINE
     Indication: Product used for unknown indication
  50. NIFEDIPINE [Suspect]
     Active Substance: NIFEDIPINE
     Route: 065
  51. NIFEDIPINE [Suspect]
     Active Substance: NIFEDIPINE
     Route: 065
  52. NIFEDIPINE [Suspect]
     Active Substance: NIFEDIPINE
  53. NORTRIPTYLINE [Suspect]
     Active Substance: NORTRIPTYLINE
     Indication: Product used for unknown indication
  54. NORTRIPTYLINE [Suspect]
     Active Substance: NORTRIPTYLINE
     Route: 065
  55. NORTRIPTYLINE [Suspect]
     Active Substance: NORTRIPTYLINE
     Route: 065
  56. NORTRIPTYLINE [Suspect]
     Active Substance: NORTRIPTYLINE
  57. TOPIRAMATE [Suspect]
     Active Substance: TOPIRAMATE
     Indication: Product used for unknown indication
  58. TOPIRAMATE [Suspect]
     Active Substance: TOPIRAMATE
  59. TOPIRAMATE [Suspect]
     Active Substance: TOPIRAMATE
     Route: 065
  60. TOPIRAMATE [Suspect]
     Active Substance: TOPIRAMATE
     Route: 065
  61. TOPIRAMATE [Suspect]
     Active Substance: TOPIRAMATE
  62. TOPIRAMATE [Suspect]
     Active Substance: TOPIRAMATE
  63. TOPIRAMATE [Suspect]
     Active Substance: TOPIRAMATE
     Route: 065
  64. TOPIRAMATE [Suspect]
     Active Substance: TOPIRAMATE
     Route: 065
  65. VALPROIC ACID [Suspect]
     Active Substance: VALPROIC ACID
     Indication: Product used for unknown indication
  66. VALPROIC ACID [Suspect]
     Active Substance: VALPROIC ACID
     Route: 065
  67. VALPROIC ACID [Suspect]
     Active Substance: VALPROIC ACID
     Route: 065
  68. VALPROIC ACID [Suspect]
     Active Substance: VALPROIC ACID
  69. VENLAFAXINE [Suspect]
     Active Substance: VENLAFAXINE HYDROCHLORIDE
     Indication: Product used for unknown indication
  70. VENLAFAXINE [Suspect]
     Active Substance: VENLAFAXINE HYDROCHLORIDE
     Route: 065
  71. VENLAFAXINE [Suspect]
     Active Substance: VENLAFAXINE HYDROCHLORIDE
     Route: 065
  72. VENLAFAXINE [Suspect]
     Active Substance: VENLAFAXINE HYDROCHLORIDE
  73. VERAPAMIL [Suspect]
     Active Substance: VERAPAMIL HYDROCHLORIDE
     Indication: Migraine
  74. VERAPAMIL [Suspect]
     Active Substance: VERAPAMIL HYDROCHLORIDE
     Route: 065
  75. VERAPAMIL [Suspect]
     Active Substance: VERAPAMIL HYDROCHLORIDE
     Route: 065
  76. VERAPAMIL [Suspect]
     Active Substance: VERAPAMIL HYDROCHLORIDE
  77. CLONIDINE [Suspect]
     Active Substance: CLONIDINE
     Indication: Product used for unknown indication
  78. CLONIDINE [Suspect]
     Active Substance: CLONIDINE
     Route: 048
  79. CLONIDINE [Suspect]
     Active Substance: CLONIDINE
     Route: 048
  80. CLONIDINE [Suspect]
     Active Substance: CLONIDINE
  81. CORGARD [Suspect]
     Active Substance: NADOLOL
     Indication: Product used for unknown indication
  82. CORGARD [Suspect]
     Active Substance: NADOLOL
     Route: 065
  83. CORGARD [Suspect]
     Active Substance: NADOLOL
     Route: 065
  84. CORGARD [Suspect]
     Active Substance: NADOLOL
  85. TRAZODONE HYDROCHLORIDE [Suspect]
     Active Substance: TRAZODONE HYDROCHLORIDE
     Indication: Product used for unknown indication
  86. TRAZODONE HYDROCHLORIDE [Suspect]
     Active Substance: TRAZODONE HYDROCHLORIDE
     Route: 065
  87. TRAZODONE HYDROCHLORIDE [Suspect]
     Active Substance: TRAZODONE HYDROCHLORIDE
     Route: 065
  88. TRAZODONE HYDROCHLORIDE [Suspect]
     Active Substance: TRAZODONE HYDROCHLORIDE
  89. NARATRIPTAN HYDROCHLORIDE [Suspect]
     Active Substance: NARATRIPTAN HYDROCHLORIDE
     Indication: Product used for unknown indication
  90. NARATRIPTAN HYDROCHLORIDE [Suspect]
     Active Substance: NARATRIPTAN HYDROCHLORIDE
     Route: 065
  91. NARATRIPTAN HYDROCHLORIDE [Suspect]
     Active Substance: NARATRIPTAN HYDROCHLORIDE
     Route: 065
  92. NARATRIPTAN HYDROCHLORIDE [Suspect]
     Active Substance: NARATRIPTAN HYDROCHLORIDE
  93. PREDNISONE [Suspect]
     Active Substance: PREDNISONE
     Indication: Product used for unknown indication
  94. PREDNISONE [Suspect]
     Active Substance: PREDNISONE
     Route: 065
  95. PREDNISONE [Suspect]
     Active Substance: PREDNISONE
     Route: 065
  96. PREDNISONE [Suspect]
     Active Substance: PREDNISONE
  97. PROPRANOLOL HYDROCHLORIDE [Suspect]
     Active Substance: PROPRANOLOL HYDROCHLORIDE
     Indication: Migraine
  98. PROPRANOLOL HYDROCHLORIDE [Suspect]
     Active Substance: PROPRANOLOL HYDROCHLORIDE
  99. PROPRANOLOL HYDROCHLORIDE [Suspect]
     Active Substance: PROPRANOLOL HYDROCHLORIDE
     Route: 065
  100. PROPRANOLOL HYDROCHLORIDE [Suspect]
     Active Substance: PROPRANOLOL HYDROCHLORIDE
     Route: 065
  101. PROPRANOLOL HYDROCHLORIDE [Suspect]
     Active Substance: PROPRANOLOL HYDROCHLORIDE
     Dosage: 40 MILLIGRAM, BID
     Route: 065
  102. PROPRANOLOL HYDROCHLORIDE [Suspect]
     Active Substance: PROPRANOLOL HYDROCHLORIDE
     Dosage: 40 MILLIGRAM, BID
  103. PROPRANOLOL HYDROCHLORIDE [Suspect]
     Active Substance: PROPRANOLOL HYDROCHLORIDE
     Dosage: 40 MILLIGRAM, BID
  104. PROPRANOLOL HYDROCHLORIDE [Suspect]
     Active Substance: PROPRANOLOL HYDROCHLORIDE
     Dosage: 40 MILLIGRAM, BID
     Route: 065
  105. PROPRANOLOL HYDROCHLORIDE [Suspect]
     Active Substance: PROPRANOLOL HYDROCHLORIDE
     Route: 065
  106. PROPRANOLOL HYDROCHLORIDE [Suspect]
     Active Substance: PROPRANOLOL HYDROCHLORIDE
     Route: 065
  107. PROPRANOLOL HYDROCHLORIDE [Suspect]
     Active Substance: PROPRANOLOL HYDROCHLORIDE
  108. PROPRANOLOL HYDROCHLORIDE [Suspect]
     Active Substance: PROPRANOLOL HYDROCHLORIDE
  109. PROPRANOLOL HYDROCHLORIDE [Suspect]
     Active Substance: PROPRANOLOL HYDROCHLORIDE
     Dosage: 80 MILLIGRAM, QD
  110. PROPRANOLOL HYDROCHLORIDE [Suspect]
     Active Substance: PROPRANOLOL HYDROCHLORIDE
     Dosage: 80 MILLIGRAM, QD
  111. PROPRANOLOL HYDROCHLORIDE [Suspect]
     Active Substance: PROPRANOLOL HYDROCHLORIDE
     Dosage: 80 MILLIGRAM, QD
     Route: 065
  112. PROPRANOLOL HYDROCHLORIDE [Suspect]
     Active Substance: PROPRANOLOL HYDROCHLORIDE
     Dosage: 80 MILLIGRAM, QD
     Route: 065
  113. PROCHLORPERAZINE [Suspect]
     Active Substance: PROCHLORPERAZINE
     Indication: Product used for unknown indication
  114. PROCHLORPERAZINE [Suspect]
     Active Substance: PROCHLORPERAZINE
     Route: 065
  115. PROCHLORPERAZINE [Suspect]
     Active Substance: PROCHLORPERAZINE
     Route: 065
  116. PROCHLORPERAZINE [Suspect]
     Active Substance: PROCHLORPERAZINE
  117. AIMOVIG [Suspect]
     Active Substance: ERENUMAB-AOOE
     Indication: Migraine
  118. AIMOVIG [Suspect]
     Active Substance: ERENUMAB-AOOE
     Route: 065
  119. AIMOVIG [Suspect]
     Active Substance: ERENUMAB-AOOE
     Route: 065
  120. AIMOVIG [Suspect]
     Active Substance: ERENUMAB-AOOE
  121. PIZOTYLINE MALEATE [Suspect]
     Active Substance: PIZOTYLINE MALEATE
     Indication: Product used for unknown indication
  122. PIZOTYLINE MALEATE [Suspect]
     Active Substance: PIZOTYLINE MALEATE
     Route: 065
  123. PIZOTYLINE MALEATE [Suspect]
     Active Substance: PIZOTYLINE MALEATE
     Route: 065
  124. PIZOTYLINE MALEATE [Suspect]
     Active Substance: PIZOTYLINE MALEATE
  125. DIHYDROERGOTAMINE MESYLATE [Suspect]
     Active Substance: DIHYDROERGOTAMINE MESYLATE
     Indication: Migraine
  126. DIHYDROERGOTAMINE MESYLATE [Suspect]
     Active Substance: DIHYDROERGOTAMINE MESYLATE
     Route: 065
  127. DIHYDROERGOTAMINE MESYLATE [Suspect]
     Active Substance: DIHYDROERGOTAMINE MESYLATE
     Route: 065
  128. DIHYDROERGOTAMINE MESYLATE [Suspect]
     Active Substance: DIHYDROERGOTAMINE MESYLATE
  129. PROCHLORPERAZINE [Suspect]
     Active Substance: PROCHLORPERAZINE
     Indication: Nausea
  130. PROCHLORPERAZINE [Suspect]
     Active Substance: PROCHLORPERAZINE
     Route: 065
  131. PROCHLORPERAZINE [Suspect]
     Active Substance: PROCHLORPERAZINE
     Route: 065
  132. PROCHLORPERAZINE [Suspect]
     Active Substance: PROCHLORPERAZINE
  133. DIVALPROEX SODIUM [Suspect]
     Active Substance: DIVALPROEX SODIUM
     Indication: Product used for unknown indication
  134. DIVALPROEX SODIUM [Suspect]
     Active Substance: DIVALPROEX SODIUM
     Route: 065
  135. DIVALPROEX SODIUM [Suspect]
     Active Substance: DIVALPROEX SODIUM
     Route: 065
  136. DIVALPROEX SODIUM [Suspect]
     Active Substance: DIVALPROEX SODIUM
  137. DIVALPROEX SODIUM [Suspect]
     Active Substance: DIVALPROEX SODIUM
     Indication: Product used for unknown indication
  138. DIVALPROEX SODIUM [Suspect]
     Active Substance: DIVALPROEX SODIUM
     Route: 065
  139. DIVALPROEX SODIUM [Suspect]
     Active Substance: DIVALPROEX SODIUM
     Route: 065
  140. DIVALPROEX SODIUM [Suspect]
     Active Substance: DIVALPROEX SODIUM
  141. FROVATRIPTAN SUCCINATE [Concomitant]
     Active Substance: FROVATRIPTAN SUCCINATE
     Indication: Product used for unknown indication
  142. FROVATRIPTAN SUCCINATE [Concomitant]
     Active Substance: FROVATRIPTAN SUCCINATE
     Route: 065
  143. FROVATRIPTAN SUCCINATE [Concomitant]
     Active Substance: FROVATRIPTAN SUCCINATE
     Route: 065
  144. FROVATRIPTAN SUCCINATE [Concomitant]
     Active Substance: FROVATRIPTAN SUCCINATE
  145. TENORMIN [Concomitant]
     Active Substance: ATENOLOL
     Indication: Product used for unknown indication
  146. TENORMIN [Concomitant]
     Active Substance: ATENOLOL
     Route: 065
  147. TENORMIN [Concomitant]
     Active Substance: ATENOLOL
     Route: 065
  148. TENORMIN [Concomitant]
     Active Substance: ATENOLOL
  149. TYLENOL [Concomitant]
     Active Substance: ACETAMINOPHEN
     Indication: Product used for unknown indication
  150. TYLENOL [Concomitant]
     Active Substance: ACETAMINOPHEN
     Route: 065
  151. TYLENOL [Concomitant]
     Active Substance: ACETAMINOPHEN
     Route: 065
  152. TYLENOL [Concomitant]
     Active Substance: ACETAMINOPHEN
  153. VALPROATE SODIUM [Concomitant]
     Active Substance: VALPROATE SODIUM
     Indication: Product used for unknown indication
  154. VALPROATE SODIUM [Concomitant]
     Active Substance: VALPROATE SODIUM
     Route: 065
  155. VALPROATE SODIUM [Concomitant]
     Active Substance: VALPROATE SODIUM
     Route: 065
  156. VALPROATE SODIUM [Concomitant]
     Active Substance: VALPROATE SODIUM
  157. BOTULINUM TOXIN TYPE A [Concomitant]
     Active Substance: BOTULINUM TOXIN TYPE A
     Indication: Product used for unknown indication
  158. BOTULINUM TOXIN TYPE A [Concomitant]
     Active Substance: BOTULINUM TOXIN TYPE A
     Route: 030
  159. BOTULINUM TOXIN TYPE A [Concomitant]
     Active Substance: BOTULINUM TOXIN TYPE A
     Route: 030
  160. BOTULINUM TOXIN TYPE A [Concomitant]
     Active Substance: BOTULINUM TOXIN TYPE A
  161. ELAVIL [Concomitant]
     Active Substance: AMITRIPTYLINE HYDROCHLORIDE
     Indication: Product used for unknown indication
  162. ELAVIL [Concomitant]
     Active Substance: AMITRIPTYLINE HYDROCHLORIDE
     Route: 065
  163. ELAVIL [Concomitant]
     Active Substance: AMITRIPTYLINE HYDROCHLORIDE
     Route: 065
  164. ELAVIL [Concomitant]
     Active Substance: AMITRIPTYLINE HYDROCHLORIDE
  165. GRAVOL [Concomitant]
     Active Substance: DIMENHYDRINATE
     Indication: Product used for unknown indication
  166. GRAVOL [Concomitant]
     Active Substance: DIMENHYDRINATE
     Route: 065
  167. GRAVOL [Concomitant]
     Active Substance: DIMENHYDRINATE
     Route: 065
  168. GRAVOL [Concomitant]
     Active Substance: DIMENHYDRINATE
  169. ALLOPURINOL [Concomitant]
     Active Substance: ALLOPURINOL
     Indication: Product used for unknown indication
  170. ALLOPURINOL [Concomitant]
     Active Substance: ALLOPURINOL
     Route: 065
  171. ALLOPURINOL [Concomitant]
     Active Substance: ALLOPURINOL
     Route: 065
  172. ALLOPURINOL [Concomitant]
     Active Substance: ALLOPURINOL

REACTIONS (17)
  - Drug ineffective for unapproved indication [Unknown]
  - Cough [Unknown]
  - Abdominal pain [Unknown]
  - Diarrhoea [Unknown]
  - Dyspnoea [Unknown]
  - Anuria [Unknown]
  - Dyspepsia [Unknown]
  - Neovascularisation [Unknown]
  - Extrapyramidal disorder [Unknown]
  - Drug ineffective [Unknown]
  - Nausea [Unknown]
  - Weight decreased [Unknown]
  - Migraine [Unknown]
  - Treatment failure [Unknown]
  - Paradoxical drug reaction [Unknown]
  - Off label use [Unknown]
  - Product use issue [Unknown]
